FAERS Safety Report 9578770 (Version 1)
Quarter: 2013Q4

REPORT INFORMATION
  Report Type: Spontaneous
  Country: US (occurrence: US)
  Receive Date: 20131001
  Receipt Date: 20131001
  Transmission Date: 20140711
  Serious: No
  Sender: FDA-Public Use
  Company Number: US-AMGEN-USASP2013014749

PATIENT
  Age: 58 Year
  Sex: Male
  Weight: 115.19 kg

DRUGS (7)
  1. ENBREL [Suspect]
     Indication: PSORIASIS
     Dosage: 50 MG, QWK
     Route: 058
  2. SOTALOL                            /00371502/ [Concomitant]
     Dosage: 120 MG, UNK
     Route: 048
  3. AMLODIPINE [Concomitant]
     Dosage: 10 MG, UNK
     Route: 048
  4. LOSARTAN                           /01121602/ [Concomitant]
     Dosage: 100 MG, UNK
     Route: 048
  5. CRESTOR [Concomitant]
     Dosage: 10 MG, UNK
     Route: 048
  6. CENTRUM SILVER                     /02363801/ [Concomitant]
     Dosage: UNK
     Route: 048
  7. XARELTO [Concomitant]
     Dosage: 10 MG, UNK
     Route: 048

REACTIONS (2)
  - Injection site reaction [Unknown]
  - Injection site erythema [Unknown]
